FAERS Safety Report 14116185 (Version 4)
Quarter: 2018Q1

REPORT INFORMATION
  Report Type: Spontaneous
  Country: US (occurrence: US)
  Receive Date: 20171023
  Receipt Date: 20180307
  Transmission Date: 20180508
  Serious: No
  Sender: FDA-Public Use
  Company Number: US-ACTELION-A-NJ2017-161363

PATIENT
  Age: 52 Year
  Sex: Female
  Weight: 58.5 kg

DRUGS (4)
  1. OPSUMIT [Suspect]
     Active Substance: MACITENTAN
     Indication: PULMONARY HYPERTENSION
     Dosage: 10 MG, QD
     Route: 048
  2. VELETRI [Suspect]
     Active Substance: EPOPROSTENOL
     Dosage: 42 NG/KG, PER MIN
     Route: 042
  3. SILDENAFIL CITRATE. [Concomitant]
     Active Substance: SILDENAFIL CITRATE
  4. VELETRI [Suspect]
     Active Substance: EPOPROSTENOL
     Indication: PULMONARY HYPERTENSION
     Dosage: 46 NG/KG, PER MIN
     Route: 042

REACTIONS (14)
  - Body temperature increased [Unknown]
  - Cough [Unknown]
  - Erythema [Unknown]
  - Diarrhoea [Unknown]
  - Flushing [Unknown]
  - Catheter site erythema [Unknown]
  - Upper respiratory tract infection [Unknown]
  - Headache [Unknown]
  - Catheter site swelling [Unknown]
  - Unevaluable event [Unknown]
  - Pain in jaw [Unknown]
  - Catheter site pain [Unknown]
  - Weight decreased [Unknown]
  - Lip discolouration [Unknown]
